FAERS Safety Report 10601565 (Version 1)
Quarter: 2014Q4

REPORT INFORMATION
  Report Type: Spontaneous
  Country: US (occurrence: None)
  Receive Date: 20141121
  Receipt Date: 20141121
  Transmission Date: 20150529
  Serious: No
  Sender: FDA-Public Use
  Company Number: None

PATIENT
  Age: 99 Year
  Sex: Male
  Weight: 58.97 kg

DRUGS (1)
  1. RISPERIDONE. [Suspect]
     Active Substance: RISPERIDONE
     Dosage: TAKE ONE TABLET BY MOUTH EVERY DAY
     Route: 048

REACTIONS (3)
  - Hallucination, auditory [None]
  - Loss of consciousness [None]
  - Memory impairment [None]

NARRATIVE: CASE EVENT DATE: 201407
